FAERS Safety Report 11512633 (Version 2)
Quarter: 2015Q4

REPORT INFORMATION
  Report Type: Spontaneous
  Country: ES (occurrence: ES)
  Receive Date: 20150916
  Receipt Date: 20151210
  Transmission Date: 20160304
  Serious: Yes (Death, Hospitalization, Other)
  Sender: FDA-Public Use
  Company Number: ES-CELGENE-ESP-2015091661

PATIENT
  Age: 68 Year
  Sex: Male
  Weight: 48 kg

DRUGS (5)
  1. GEMCITABINE [Concomitant]
     Active Substance: GEMCITABINE\GEMCITABINE HYDROCHLORIDE
     Dosage: REDUCED DOSE
     Route: 065
  2. GEMCITABINE [Concomitant]
     Active Substance: GEMCITABINE\GEMCITABINE HYDROCHLORIDE
     Indication: ADENOCARCINOMA PANCREAS
     Route: 065
  3. ABRAXANE [Suspect]
     Active Substance: PACLITAXEL
     Indication: ADENOCARCINOMA PANCREAS
     Route: 041
  4. XELODA [Concomitant]
     Active Substance: CAPECITABINE
     Indication: ADENOCARCINOMA PANCREAS
     Route: 065
     Dates: start: 201505, end: 20150629
  5. ABRAXANE [Suspect]
     Active Substance: PACLITAXEL
     Dosage: REDUCED DOSE
     Route: 041

REACTIONS (11)
  - Hepatotoxicity [Unknown]
  - Decreased appetite [Unknown]
  - Asthenia [Unknown]
  - Abdominal pain [Unknown]
  - Upper gastrointestinal haemorrhage [Unknown]
  - Cachexia [Unknown]
  - Paraesthesia [Unknown]
  - Metastases to liver [Unknown]
  - Death [Fatal]
  - Alopecia [Unknown]
  - Upper gastrointestinal haemorrhage [Unknown]

NARRATIVE: CASE EVENT DATE: 201507
